FAERS Safety Report 12563460 (Version 1)
Quarter: 2016Q3

REPORT INFORMATION
  Report Type: Spontaneous
  Country: US (occurrence: US)
  Receive Date: 20160715
  Receipt Date: 20160715
  Transmission Date: 20161109
  Serious: No
  Sender: FDA-Public Use
  Company Number: US-GLAXOSMITHKLINE-US2016100745

PATIENT
  Sex: Female

DRUGS (1)
  1. LAMOTRIGINE. [Suspect]
     Active Substance: LAMOTRIGINE
     Indication: PRODUCT USED FOR UNKNOWN INDICATION
     Dosage: 200 MG, UNK

REACTIONS (8)
  - Increased tendency to bruise [Unknown]
  - Haemorrhoidal haemorrhage [Unknown]
  - Nausea [Unknown]
  - Headache [Unknown]
  - Contusion [Unknown]
  - Confusional state [Unknown]
  - Disorientation [Unknown]
  - Constipation [Unknown]
